FAERS Safety Report 23255462 (Version 2)
Quarter: 2023Q4

REPORT INFORMATION
  Report Type: Report from Study
  Country: JP (occurrence: JP)
  Receive Date: 20231203
  Receipt Date: 20231218
  Transmission Date: 20240110
  Serious: Yes (Other)
  Sender: FDA-Public Use
  Company Number: JP-BIOGEN-2023BI01237808

PATIENT
  Sex: Male
  Weight: 52.9 kg

DRUGS (1)
  1. SPINRAZA [Suspect]
     Active Substance: NUSINERSEN
     Indication: Spinal muscular atrophy
     Route: 050
     Dates: start: 20180704

REACTIONS (3)
  - Radius fracture [Unknown]
  - Femur fracture [Unknown]
  - Tibia fracture [Unknown]
